FAERS Safety Report 23889101 (Version 1)
Quarter: 2024Q2

REPORT INFORMATION
  Report Type: Report from Study
  Country: CA (occurrence: CA)
  Receive Date: 20240523
  Receipt Date: 20240523
  Transmission Date: 20240716
  Serious: Yes (Hospitalization, Other)
  Sender: FDA-Public Use
  Company Number: CA-BIOCON BIOLOGICS LIMITED-BBL2024003050

PATIENT

DRUGS (1)
  1. HULIO [Suspect]
     Active Substance: ADALIMUMAB-FKJP
     Indication: Psoriatic arthropathy
     Dosage: 40 MILLIGRAM, BIWEEKLY
     Route: 058

REACTIONS (5)
  - Pneumonia [Recovering/Resolving]
  - Pain [Unknown]
  - Hernia [Unknown]
  - Fluid retention [Unknown]
  - Cough [Unknown]

NARRATIVE: CASE EVENT DATE: 20240422
